FAERS Safety Report 25939849 (Version 1)
Quarter: 2025Q4

REPORT INFORMATION
  Report Type: Spontaneous
  Country: MX (occurrence: MX)
  Receive Date: 20251020
  Receipt Date: 20251020
  Transmission Date: 20260119
  Serious: Yes (Life-Threatening, Other)
  Sender: ACCORD
  Company Number: MX-Accord-508919

PATIENT
  Age: 11 Year
  Sex: Male

DRUGS (7)
  1. ETOPOSIDE [Suspect]
     Active Substance: ETOPOSIDE
     Indication: Burkitt^s lymphoma stage IV
     Dosage: FIRST CYCLE, 100 MG/M2/DAY X2 DOSES
  2. METHOTREXATE [Suspect]
     Active Substance: METHOTREXATE
     Indication: Burkitt^s lymphoma stage IV
     Dosage: 5G/M2 FIRST CYCLE
  3. CYTARABINE [Suspect]
     Active Substance: CYTARABINE
     Indication: Burkitt^s lymphoma stage IV
     Dosage: FIRST CYCLE, 150 MG/M2/DAY X2 DOSES
  4. LEUCOVORIN [Suspect]
     Active Substance: LEUCOVORIN\LEUCOVORIN CALCIUM
     Indication: Burkitt^s lymphoma stage IV
     Dosage: FIRST CYCLE
  5. IFOSFAMIDE [Suspect]
     Active Substance: IFOSFAMIDE
     Indication: Burkitt^s lymphoma stage IV
     Dosage: FIRST CYCLE
  6. MESNA [Suspect]
     Active Substance: MESNA
     Indication: Burkitt^s lymphoma stage IV
     Dosage: FIRST CYCLE
  7. VINCRISTINE [Suspect]
     Active Substance: VINCRISTINE
     Indication: Burkitt^s lymphoma stage IV
     Dosage: FIRST CYCLE

REACTIONS (5)
  - Mucosal inflammation [Recovered/Resolved]
  - Dermatosis [Recovered/Resolved]
  - Ascites [Unknown]
  - Pleural effusion [Unknown]
  - Renal injury [Unknown]
